FAERS Safety Report 7282625-1 (Version None)
Quarter: 2011Q1

REPORT INFORMATION
  Report Type: 
  Country: None (occurrence: None)
  Receive Date: 20110209
  Receipt Date: 20110128
  Transmission Date: 20110831
  Serious: Yes (Other)
  Sender: FDA-Public Use
  Company Number: FI-NOVOPROD-322609

PATIENT
  Age: 72 Year
  Sex: Female

DRUGS (2)
  1. LEVEMIR [Suspect]
     Indication: LATENT AUTOIMMUNE DIABETES IN ADULTS
     Dosage: 6 OR 8 UNITS PER DAY
     Route: 065
  2. INSULIN LISPRO [Concomitant]

REACTIONS (4)
  - HYPOTHERMIA [None]
  - VISUAL IMPAIRMENT [None]
  - FEELING ABNORMAL [None]
  - HYPOGLYCAEMIA [None]
